FAERS Safety Report 17593504 (Version 1)
Quarter: 2020Q1

REPORT INFORMATION
  Report Type: Spontaneous
  Country: FR (occurrence: FR)
  Receive Date: 20200327
  Receipt Date: 20200327
  Transmission Date: 20200409
  Serious: Yes (Hospitalization)
  Sender: FDA-Public Use
  Company Number: FR-MYLANLABS-2020M1032137

PATIENT
  Age: 4 Year
  Sex: Female
  Weight: 16 kg

DRUGS (2)
  1. ACICLOVIR MYLAN 250 MG, POUDRE POUR SOLUTION INJECTABLE (I.V.) [Suspect]
     Active Substance: ACYCLOVIR
     Indication: VARICELLA
     Dosage: 20 MILLIGRAM/KILOGRAM, Q8H
     Route: 041
     Dates: start: 20200221, end: 20200225
  2. VANCOMICINA MYLAN [Suspect]
     Active Substance: VANCOMYCIN
     Indication: CATHETER SITE INFECTION
     Dosage: EN CONTINU
     Route: 041
     Dates: start: 20200219, end: 20200222

REACTIONS (2)
  - Hypoacusis [Recovering/Resolving]
  - Acute kidney injury [Recovered/Resolved]

NARRATIVE: CASE EVENT DATE: 20200222
